FAERS Safety Report 20518963 (Version 1)
Quarter: 2022Q1

REPORT INFORMATION
  Report Type: Spontaneous
  Country: US (occurrence: None)
  Receive Date: 20220225
  Receipt Date: 20220225
  Transmission Date: 20220423
  Serious: Yes (Other)
  Sender: FDA-Public Use
  Company Number: None

PATIENT
  Age: 85 Year
  Sex: Female
  Weight: 54 kg

DRUGS (1)
  1. EVUSHELD [Suspect]
     Active Substance: CILGAVIMAB\TIXAGEVIMAB
     Indication: Immunodeficiency
     Route: 030
     Dates: start: 20220221

REACTIONS (4)
  - Blood pressure increased [None]
  - Nausea [None]
  - Dizziness [None]
  - Therapy non-responder [None]

NARRATIVE: CASE EVENT DATE: 20220221
